FAERS Safety Report 11564993 (Version 1)
Quarter: 2015Q3

REPORT INFORMATION
  Report Type: Spontaneous
  Country: US (occurrence: US)
  Receive Date: 20150928
  Receipt Date: 20150928
  Transmission Date: 20151125
  Serious: No
  Sender: FDA-Public Use
  Company Number: US-EXELIXIS-CABO-13003816

PATIENT
  Age: 56 Year
  Sex: Male

DRUGS (18)
  1. HYDROCODONE [Concomitant]
     Active Substance: HYDROCODONE
  2. COMETRIQ [Suspect]
     Active Substance: CABOZANTINIB S-MALATE
     Indication: METASTASES TO BONE MARROW
     Dosage: 60 MG, QD
     Route: 048
     Dates: start: 20131219, end: 20140305
  3. FENOFIBRATE. [Concomitant]
     Active Substance: FENOFIBRATE
  4. OMEGA 3 [Concomitant]
     Active Substance: OMEGA-3 FATTY ACIDS
  5. IRON [Concomitant]
     Active Substance: IRON
  6. COMETRIQ [Suspect]
     Active Substance: CABOZANTINIB S-MALATE
     Dosage: 2 CAPSULES, QD
     Route: 048
  7. MACRODANTIN [Concomitant]
     Active Substance: NITROFURANTOIN
  8. CULTURELLE [Concomitant]
     Active Substance: LACTOBACILLUS RHAMNOSUS
  9. COMETRIQ [Suspect]
     Active Substance: CABOZANTINIB S-MALATE
     Dosage: 60 MG, QD
     Route: 048
     Dates: start: 2015, end: 20150826
  10. CALCIUM CITRATE [Concomitant]
     Active Substance: CALCIUM CITRATE
  11. TYLENOL [Concomitant]
     Active Substance: ACETAMINOPHEN
  12. COMETRIQ [Suspect]
     Active Substance: CABOZANTINIB S-MALATE
     Dosage: 60 MG, QD
     Route: 048
     Dates: start: 20150512, end: 201507
  13. LEVOTHYROXINE. [Concomitant]
     Active Substance: LEVOTHYROXINE
  14. COMETRIQ [Suspect]
     Active Substance: CABOZANTINIB S-MALATE
     Dosage: 40 MG, QD
     Route: 048
     Dates: start: 20140306
  15. DULOXETINE. [Concomitant]
     Active Substance: DULOXETINE
  16. GABAPENTIN. [Concomitant]
     Active Substance: GABAPENTIN
  17. PANTOPRAZOLE [Concomitant]
     Active Substance: PANTOPRAZOLE SODIUM
  18. LISINOPRIL. [Concomitant]
     Active Substance: LISINOPRIL

REACTIONS (18)
  - Fear [Unknown]
  - Nausea [Recovering/Resolving]
  - Arthralgia [Unknown]
  - Flatulence [Unknown]
  - Off label use [Unknown]
  - Cough [Unknown]
  - Adverse event [Unknown]
  - Constipation [Recovering/Resolving]
  - Dysphonia [Unknown]
  - Dysgeusia [Recovering/Resolving]
  - Decreased appetite [Unknown]
  - Diarrhoea [Unknown]
  - Therapeutic product ineffective for unapproved indication [Unknown]
  - Back pain [Recovering/Resolving]
  - Fatigue [Recovering/Resolving]
  - Dizziness [Unknown]
  - Nasopharyngitis [Unknown]
  - Glossodynia [Unknown]

NARRATIVE: CASE EVENT DATE: 201312
